FAERS Safety Report 8318308 (Version 4)
Quarter: 2013Q4

REPORT INFORMATION
  Report Type: Report from Study
  Country: NL (occurrence: NL)
  Receive Date: 20120103
  Receipt Date: 20131101
  Transmission Date: 20140711
  Serious: Yes (Hospitalization)
  Sender: FDA-Public Use
  Company Number: NL-AMGEN-NLDSP2011069274

PATIENT
  Age: 43 Year
  Sex: Male
  Weight: 78 kg

DRUGS (7)
  1. FILGRASTIM [Suspect]
     Indication: MALIGNANT LYMPHOID NEOPLASM
     Dosage: 6 MG, UNK
     Route: 058
     Dates: start: 2011
  2. DOXORUBICIN [Concomitant]
     Indication: MALIGNANT LYMPHOID NEOPLASM
     Dosage: 105 MG, UNK
     Route: 042
     Dates: start: 2011
  3. CYCLOPHOSPHAMIDE [Concomitant]
     Indication: MALIGNANT LYMPHOID NEOPLASM
     Dosage: 1575 MG, UNK
     Route: 042
     Dates: start: 2011
  4. RITUXIMAB [Concomitant]
     Indication: MALIGNANT LYMPHOID NEOPLASM
     Dosage: 750 MG, UNK
     Route: 042
     Dates: start: 2011
  5. PREDNISONE [Concomitant]
     Indication: MALIGNANT LYMPHOID NEOPLASM
     Dosage: 100 MG, UNK
     Route: 048
     Dates: start: 2011
  6. VINCRISTINE [Concomitant]
     Indication: MALIGNANT LYMPHOID NEOPLASM
     Dosage: 2 MG, UNK
     Route: 042
     Dates: start: 2011
  7. VINCRISTINE [Concomitant]
     Dosage: 1 MG, UNK
     Route: 042
     Dates: start: 20111208

REACTIONS (1)
  - Neutropenic infection [Recovered/Resolved]
